FAERS Safety Report 24634440 (Version 1)
Quarter: 2024Q4

REPORT INFORMATION
  Report Type: Report from Study
  Country: TN (occurrence: TN)
  Receive Date: 20241119
  Receipt Date: 20241119
  Transmission Date: 20250114
  Serious: Yes (Hospitalization)
  Sender: ABBVIE
  Company Number: TN-ABBVIE-6004909

PATIENT
  Age: 48 Year
  Sex: Male

DRUGS (5)
  1. HUMIRA [Suspect]
     Active Substance: ADALIMUMAB
     Indication: Ankylosing spondylitis
     Dosage: FORM STRENGTH: 40 MG
     Route: 058
     Dates: start: 20130101, end: 2018
  2. HUMIRA [Suspect]
     Active Substance: ADALIMUMAB
     Dosage: FORM STRENGTH: 40 MG
     Route: 058
     Dates: start: 2018, end: 202309
  3. HUMIRA [Suspect]
     Active Substance: ADALIMUMAB
     Dosage: FORM STRENGTH: 40 MG
     Route: 058
     Dates: start: 2024, end: 202406
  4. CINCOR [Concomitant]
     Indication: Hypertension
     Dosage: 2 TABLET
     Route: 048
     Dates: start: 2013
  5. Diclofen [Concomitant]
     Indication: Product used for unknown indication
     Dosage: 2 TABLET
     Route: 048
     Dates: start: 202405

REACTIONS (18)
  - Hernia [Recovered/Resolved]
  - Therapeutic product effect decreased [Not Recovered/Not Resolved]
  - Arthralgia [Unknown]
  - Varicose vein [Not Recovered/Not Resolved]
  - Abdominal pain upper [Recovered/Resolved]
  - Ankylosing spondylitis [Not Recovered/Not Resolved]
  - Burning sensation [Unknown]
  - Hernia [Recovered/Resolved]
  - Hypoaesthesia [Recovered/Resolved]
  - Neck pain [Unknown]
  - Bone pain [Unknown]
  - Chest pain [Unknown]
  - Musculoskeletal chest pain [Unknown]
  - Pelvic pain [Unknown]
  - Pain in extremity [Unknown]
  - Drug hypersensitivity [Recovered/Resolved]
  - Hypoaesthesia [Recovered/Resolved]
  - Pruritus allergic [Recovered/Resolved]

NARRATIVE: CASE EVENT DATE: 20130101
